FAERS Safety Report 14258390 (Version 4)
Quarter: 2019Q2

REPORT INFORMATION
  Report Type: Spontaneous
  Country: US (occurrence: US)
  Receive Date: 20171207
  Receipt Date: 20190620
  Transmission Date: 20190711
  Serious: No
  Sender: FDA-Public Use
  Company Number: US-PFIZER INC-2017523792

PATIENT
  Age: 19 Year
  Sex: Female

DRUGS (8)
  1. CISPLATIN. [Suspect]
     Active Substance: CISPLATIN
     Indication: HEPATOSPLENIC T-CELL LYMPHOMA
     Dosage: UNK
     Route: 042
  2. GEMCITABINE HYDROCHLORIDE. [Suspect]
     Active Substance: GEMCITABINE HYDROCHLORIDE
     Indication: HEPATOSPLENIC T-CELL LYMPHOMA
     Dosage: UNK
  3. VINORELBINE TARTRATE. [Suspect]
     Active Substance: VINORELBINE TARTRATE
     Indication: HEPATOSPLENIC T-CELL LYMPHOMA
     Dosage: UNK
  4. CLADRIBINE. [Suspect]
     Active Substance: CLADRIBINE
     Indication: HEPATOSPLENIC T-CELL LYMPHOMA
     Dosage: UNK
  5. FLUDARABINE PHOSPHATE. [Suspect]
     Active Substance: FLUDARABINE PHOSPHATE
     Indication: HEPATOSPLENIC T-CELL LYMPHOMA
     Dosage: UNK
  6. DEXAMETHASONE. [Suspect]
     Active Substance: DEXAMETHASONE
     Indication: HEPATOSPLENIC T-CELL LYMPHOMA
     Dosage: UNK
  7. CYTARABINE. [Suspect]
     Active Substance: CYTARABINE
     Indication: HEPATOSPLENIC T-CELL LYMPHOMA
     Dosage: UNK
  8. BENDAMUSTINE HYDROCHLORIDE. [Suspect]
     Active Substance: BENDAMUSTINE HYDROCHLORIDE
     Indication: HEPATOSPLENIC T-CELL LYMPHOMA
     Dosage: UNK, CYCLIC
     Route: 042

REACTIONS (3)
  - Off label use [Unknown]
  - Product use in unapproved indication [Unknown]
  - Neoplasm progression [Unknown]
